FAERS Safety Report 7284257-8 (Version None)
Quarter: 2011Q1

REPORT INFORMATION
  Report Type: 
  Country: None (occurrence: None)
  Receive Date: 20110131
  Receipt Date: 20110113
  Transmission Date: 20110831
  Serious: Yes (Other)
  Sender: FDA-Public Use
  Company Number: 2009S1002579

PATIENT
  Age: 54 Year
  Sex: Male
  Weight: 65.7716 kg

DRUGS (4)
  1. PHOSPHOSODA FLAVOR NOT SPECIFIED [Suspect]
     Indication: COLONOSCOPY
     Dosage: 45 ML; X1; PO
     Route: 048
     Dates: start: 20070809, end: 20070810
  2. METOPROLOL [Concomitant]
  3. VASOTEC [Concomitant]
  4. CLONIDINE [Concomitant]

REACTIONS (7)
  - RENAL FAILURE ACUTE [None]
  - ANAEMIA [None]
  - URINARY TRACT INFECTION [None]
  - DEHYDRATION [None]
  - PROSTATIC SPECIFIC ANTIGEN INCREASED [None]
  - HYPOTHYROIDISM [None]
  - CEREBRAL ARTERIOSCLEROSIS [None]
